FAERS Safety Report 9753071 (Version 1)
Quarter: 2013Q4

REPORT INFORMATION
  Report Type: Spontaneous
  Country: US (occurrence: US)
  Receive Date: 20131213
  Receipt Date: 20131213
  Transmission Date: 20140711
  Serious: No
  Sender: FDA-Public Use
  Company Number: US-GILEAD-2009-0026205

PATIENT
  Sex: Female

DRUGS (13)
  1. LETAIRIS [Suspect]
     Indication: PULMONARY ARTERIAL HYPERTENSION
     Route: 048
     Dates: start: 20091029
  2. NAPROXEN [Concomitant]
  3. CENTRUM [Concomitant]
  4. TYLENOL [Concomitant]
  5. MYCOPHENOLATE [Concomitant]
  6. NASONEX [Concomitant]
  7. OMEPRAZOLE [Concomitant]
  8. AZITHROMYCIN [Concomitant]
  9. HYDROXYCHLOROQUINE [Concomitant]
  10. CITRACAL+D [Concomitant]
  11. SYMBICORT [Concomitant]
  12. XOPENEX [Concomitant]
  13. B-COMPLEX VITAMIN C [Concomitant]

REACTIONS (1)
  - Nasal congestion [Unknown]
